FAERS Safety Report 6339187-2 (Version None)
Quarter: 2009Q3

REPORT INFORMATION
  Report Type: 
  Country: None (occurrence: None)
  Receive Date: 20090903
  Receipt Date: 20090901
  Transmission Date: 20100115
  Serious: Yes (Hospitalization)
  Sender: FDA-Public Use
  Company Number: JP-AVENTIS-200911715JP

PATIENT
  Age: 62 Year
  Sex: Female
  Weight: 47 kg

DRUGS (5)
  1. ARAVA [Suspect]
     Indication: RHEUMATOID ARTHRITIS
     Route: 048
     Dates: start: 20090520, end: 20090601
  2. SAXIZON [Suspect]
     Indication: RASH GENERALISED
     Route: 042
     Dates: start: 20090602, end: 20090602
  3. SHIOSOL [Concomitant]
     Indication: RHEUMATOID ARTHRITIS
     Dosage: DOSE: 10MG/2WEEKS
     Route: 030
     Dates: start: 20090114, end: 20090528
  4. METOLATE [Concomitant]
     Indication: RHEUMATOID ARTHRITIS
     Dosage: DOSE: 4MG/WEEK
     Route: 048
     Dates: start: 20090430, end: 20090514
  5. MOHRUS [Concomitant]
     Indication: RHEUMATOID ARTHRITIS
     Dosage: DOSE: 8P-9P/ MONTH

REACTIONS (10)
  - ALANINE AMINOTRANSFERASE INCREASED [None]
  - ASPARTATE AMINOTRANSFERASE INCREASED [None]
  - COUGH [None]
  - DYSPNOEA [None]
  - EOSINOPHIL COUNT INCREASED [None]
  - NAUSEA [None]
  - RASH GENERALISED [None]
  - SNEEZING [None]
  - STEVENS-JOHNSON SYNDROME [None]
  - WHITE BLOOD CELL COUNT DECREASED [None]
